FAERS Safety Report 5945428-3 (Version None)
Quarter: 2008Q4

REPORT INFORMATION
  Report Type: 
  Country: None (occurrence: None)
  Receive Date: 20081107
  Receipt Date: 20081104
  Transmission Date: 20090506
  Serious: Yes (Other)
  Sender: FDA-Public Use
  Company Number: US-PFIZER INC-2008081124

PATIENT
  Sex: Female

DRUGS (3)
  1. CELEBREX [Suspect]
  2. WARFARIN SODIUM [Concomitant]
  3. BETAPACE [Concomitant]

REACTIONS (1)
  - ATRIAL FIBRILLATION [None]
